FAERS Safety Report 7865275-5 (Version None)
Quarter: 2011Q4

REPORT INFORMATION
  Report Type: 
  Country: None (occurrence: None)
  Receive Date: 20111028
  Receipt Date: 20101115
  Transmission Date: 20120403
  Serious: No
  Sender: FDA-Public Use
  Company Number: US-GLAXOSMITHKLINE-A0892544A

PATIENT
  Age: 59 Year
  Sex: Female

DRUGS (6)
  1. ISOSORBIDE DINITRATE [Concomitant]
  2. ADVAIR DISKUS 100/50 [Suspect]
     Indication: CHRONIC OBSTRUCTIVE PULMONARY DISEASE
     Route: 055
  3. CHLORDIAZEPOXIDE HYDROCHLORIDE [Concomitant]
  4. COMBIVENT [Concomitant]
  5. METOPROLOL TARTRATE [Concomitant]
  6. THEOPHYLLINE [Concomitant]

REACTIONS (4)
  - DYSPNOEA [None]
  - INHALATION THERAPY [None]
  - PRODUCT QUALITY ISSUE [None]
  - WHEEZING [None]
